FAERS Safety Report 23559542 (Version 1)
Quarter: 2024Q1

REPORT INFORMATION
  Report Type: Spontaneous
  Country: CA (occurrence: CA)
  Receive Date: 20240223
  Receipt Date: 20240223
  Transmission Date: 20240409
  Serious: Yes (Hospitalization)
  Sender: FDA-Public Use
  Company Number: CA-BAYER-2024A027721

PATIENT
  Age: 72 Year
  Sex: Female
  Weight: 165 kg

DRUGS (27)
  1. CIPROFLOXACIN [Suspect]
     Active Substance: CIPROFLOXACIN
     Indication: Chronic obstructive pulmonary disease
     Dosage: 500 MG, BID
     Route: 048
  2. CLONAZEPAM [Concomitant]
     Active Substance: CLONAZEPAM
     Route: 065
  3. ACETAMINOPHEN [Concomitant]
     Active Substance: ACETAMINOPHEN
  4. AMLODIPINE [Concomitant]
     Active Substance: AMLODIPINE BESYLATE
     Route: 065
  5. CETIRIZINE [Concomitant]
     Active Substance: CETIRIZINE HYDROCHLORIDE
     Route: 065
  6. DOCUSATE SODIUM [Concomitant]
     Active Substance: DOCUSATE SODIUM
     Route: 065
  7. DULOXETINE HYDROCHLORIDE [Concomitant]
     Active Substance: DULOXETINE HYDROCHLORIDE
     Route: 048
  8. FERROUS SULFATE [Concomitant]
     Active Substance: FERROUS SULFATE
  9. LAMOTRIGINE [Concomitant]
     Active Substance: LAMOTRIGINE
  10. LEVOTHYROXINE SODIUM [Concomitant]
     Active Substance: LEVOTHYROXINE SODIUM
     Route: 065
  11. POLYETHYLENE GLYCOLS [Concomitant]
     Active Substance: POLYETHYLENE GLYCOLS
  12. QUETIAPINE [Concomitant]
     Active Substance: QUETIAPINE
  13. ALBUTEROL [Concomitant]
     Active Substance: ALBUTEROL
  14. SENNOSIDES [Concomitant]
     Active Substance: SENNOSIDES
  15. FLUTICASONE [Concomitant]
     Active Substance: FLUTICASONE
  16. VITAMIN D NOS [Concomitant]
     Active Substance: VITAMIN D NOS
  17. ROSUVASTATIN [Concomitant]
     Active Substance: ROSUVASTATIN
     Route: 065
  18. CALCIUM CARBONATE [Concomitant]
     Active Substance: CALCIUM CARBONATE
  19. DOMPERIDONE [Concomitant]
     Active Substance: DOMPERIDONE
  20. PANTOPRAZOLE [Concomitant]
     Active Substance: PANTOPRAZOLE
  21. ASCORBIC ACID [Concomitant]
     Active Substance: ASCORBIC ACID
  22. BISOPROLOL [Concomitant]
     Active Substance: BISOPROLOL\BISOPROLOL FUMARATE
  23. DIVALPROEX SODIUM [Concomitant]
     Active Substance: DIVALPROEX SODIUM
  24. MOMETASONE FUROATE [Concomitant]
     Active Substance: MOMETASONE FUROATE
  25. PRUCALOPRIDE SUCCINATE [Concomitant]
     Active Substance: PRUCALOPRIDE SUCCINATE
  26. GABAPENTIN [Concomitant]
     Active Substance: GABAPENTIN
  27. MORPHINE [Concomitant]
     Active Substance: MORPHINE

REACTIONS (5)
  - Clostridium difficile infection [Recovered/Resolved]
  - Colitis [Recovered/Resolved]
  - General physical health deterioration [Recovered/Resolved]
  - Acute kidney injury [Recovered/Resolved]
  - Electrolyte imbalance [Recovered/Resolved]
